FAERS Safety Report 9329188 (Version 1)
Quarter: 2013Q2

REPORT INFORMATION
  Report Type: Spontaneous
  Country: US (occurrence: US)
  Receive Date: 20130604
  Receipt Date: 20130604
  Transmission Date: 20140414
  Serious: Yes (Other)
  Sender: FDA-Public Use
  Company Number: US-SANOFI-AVENTIS-2012SA074749

PATIENT
  Sex: Female

DRUGS (3)
  1. LANTUS SOLOSTAR [Suspect]
     Indication: TYPE 2 DIABETES MELLITUS
     Dosage: 36 UNITS IN TEH MORNING AND 60 UNITS AT NIGHT
     Route: 058
  2. SOLOSTAR [Suspect]
     Indication: TYPE 2 DIABETES MELLITUS
  3. HUMALOG [Concomitant]
     Dosage: DOSE:9 UNIT(S)

REACTIONS (2)
  - Cataract [Unknown]
  - Blood glucose increased [Unknown]
